FAERS Safety Report 8085078-9 (Version None)
Quarter: 2012Q1

REPORT INFORMATION
  Report Type: 
  Country: None (occurrence: None)
  Receive Date: 20120128
  Receipt Date: 20110321
  Transmission Date: 20120608
  Serious: No
  Sender: FDA-Public Use
  Company Number: US-ABBOTT-11P-163-0713141-00

PATIENT
  Sex: Male
  Weight: 99.88 kg

DRUGS (7)
  1. FOLIC ACID [Concomitant]
     Indication: PRODUCT USED FOR UNKNOWN INDICATION
  2. ENALAPRIL [Concomitant]
     Indication: HYPERTENSION
  3. HUMIRA [Suspect]
     Indication: PSORIASIS
     Dates: start: 20060101
  4. TRAIMTERENE/HYDROCHLOROTHIAZIDE [Concomitant]
     Indication: HYPERTENSION
  5. DILTIAZEM HCL [Concomitant]
     Indication: HYPERTENSION
  6. LOVASTATIN [Concomitant]
     Indication: BLOOD CHOLESTEROL INCREASED
  7. VITAMIN D [Concomitant]
     Indication: PRODUCT USED FOR UNKNOWN INDICATION

REACTIONS (1)
  - RHINORRHOEA [None]
